FAERS Safety Report 7404573-6 (Version None)
Quarter: 2011Q2

REPORT INFORMATION
  Report Type: 
  Country: None (occurrence: None)
  Receive Date: 20110411
  Receipt Date: 20110401
  Transmission Date: 20111010
  Serious: Yes (Hospitalization)
  Sender: FDA-Public Use
  Company Number: US-BIOGENIDEC-2010BI029581

PATIENT
  Age: 58 Year
  Sex: Female
  Weight: 50 kg

DRUGS (4)
  1. TYSABRI [Suspect]
     Indication: MULTIPLE SCLEROSIS
     Route: 042
     Dates: start: 20080421
  2. NEURONTIN [Concomitant]
     Indication: MUSCLE SPASTICITY
  3. ZANAFLEX [Concomitant]
     Indication: MUSCLE SPASTICITY
  4. BACLOFEN [Concomitant]
     Indication: MUSCLE SPASTICITY
     Dates: start: 20070101

REACTIONS (6)
  - HIP FRACTURE [None]
  - MUSCLE SPASMS [None]
  - FALL [None]
  - LACERATION [None]
  - GAIT DISTURBANCE [None]
  - CONTUSION [None]
